FAERS Safety Report 14728102 (Version 3)
Quarter: 2020Q4

REPORT INFORMATION
  Report Type: Report from Study
  Country: None (occurrence: RO)
  Receive Date: 20180406
  Receipt Date: 20201125
  Transmission Date: 20210113
  Serious: Yes (Hospitalization, Other)
  Sender: FDA-Public Use
  Company Number: RO-ABBVIE-18K-135-2313463-00

PATIENT
  Age: 63 Year
  Sex: Female

DRUGS (5)
  1. HUMIRA [Suspect]
     Active Substance: ADALIMUMAB
     Indication: PSORIASIS
     Route: 058
     Dates: start: 20140911, end: 20201108
  2. LIV 52 [Concomitant]
     Indication: PROPHYLAXIS
     Route: 048
  3. HUMIRA [Suspect]
     Active Substance: ADALIMUMAB
     Route: 058
     Dates: start: 20201115
  4. SILYMARIN WITH ARTICHOKE [Concomitant]
     Indication: PROPHYLAXIS
     Route: 048
  5. COPRENESSA [Concomitant]
     Active Substance: INDAPAMIDE\PERINDOPRIL ERBUMINE
     Indication: HYPERTENSION
     Route: 048

REACTIONS (8)
  - Erythema [Not Recovered/Not Resolved]
  - Uterine polyp [Recovered/Resolved]
  - Respiratory tract infection viral [Recovered/Resolved]
  - Glaucoma [Unknown]
  - Eye oedema [Recovering/Resolving]
  - Eye contusion [Recovering/Resolving]
  - Uterine polyp [Recovered/Resolved]
  - Cataract [Recovering/Resolving]

NARRATIVE: CASE EVENT DATE: 2016
